FAERS Safety Report 13504084 (Version 1)
Quarter: 2017Q2

REPORT INFORMATION
  Report Type: Other
  Country: None (occurrence: US)
  Receive Date: 20170502
  Receipt Date: 20170502
  Transmission Date: 20170830
  Serious: Yes (Death)
  Sender: FDA-Public Use
  Company Number: US-KNIGHT THERAPEUTICS (USA) INC.-2020115

PATIENT
  Age: 14 Year
  Sex: Male

DRUGS (8)
  1. PENTOBARBITAL. [Suspect]
     Active Substance: PENTOBARBITAL
  2. VANCOMYCIN [Suspect]
     Active Substance: VANCOMYCIN
  3. IMPAVIDO [Suspect]
     Active Substance: MILTEFOSINE
     Indication: NAEGLERIA INFECTION
  4. RIFAMPIN. [Suspect]
     Active Substance: RIFAMPIN
  5. AMPHOTERICIN B. [Suspect]
     Active Substance: AMPHOTERICIN B
  6. CEFTRIAXONE AND DEXTROSE [Suspect]
     Active Substance: CEFTRIAXONE SODIUM
  7. AZITHROMYCIN ANHYDROUS. [Suspect]
     Active Substance: AZITHROMYCIN ANHYDROUS
  8. FLUCONAZOLE. [Suspect]
     Active Substance: FLUCONAZOLE

REACTIONS (2)
  - Drug ineffective for unapproved indication [Fatal]
  - Off label use [Fatal]
